FAERS Safety Report 16823631 (Version 1)
Quarter: 2019Q3

REPORT INFORMATION
  Report Type: Spontaneous
  Country: US (occurrence: US)
  Receive Date: 20190918
  Receipt Date: 20190918
  Transmission Date: 20191005
  Serious: Yes (Death, Hospitalization, Other)
  Sender: FDA-Public Use
  Company Number: US-ASTRAZENECA-2019SF31931

PATIENT
  Age: 893 Month
  Sex: Female
  Weight: 90.7 kg

DRUGS (1)
  1. BRILINTA [Suspect]
     Active Substance: TICAGRELOR
     Indication: CARDIAC DISORDER
     Route: 048
     Dates: start: 20171206

REACTIONS (8)
  - Renal impairment [Unknown]
  - Acute kidney injury [Fatal]
  - Respiratory failure [Fatal]
  - Skin haemorrhage [Unknown]
  - Pulmonary haemorrhage [Unknown]
  - Pneumonia [Fatal]
  - Contusion [Unknown]
  - Myocardial infarction [Unknown]

NARRATIVE: CASE EVENT DATE: 201712
